FAERS Safety Report 16914658 (Version 1)
Quarter: 2019Q4

REPORT INFORMATION
  Report Type: Spontaneous
  Country: US (occurrence: US)
  Receive Date: 20190822
  Receipt Date: 20190822
  Transmission Date: 20200122
  Serious: No
  Sender: FDA-Public Use
  Company Number: None

PATIENT
  Age: 57 Year
  Sex: Male

DRUGS (1)
  1. COPAXONE [Suspect]
     Active Substance: GLATIRAMER ACETATE
     Indication: MULTIPLE SCLEROSIS
     Route: 058
     Dates: start: 20160314

REACTIONS (10)
  - Rash [None]
  - Injection site urticaria [None]
  - Injection site pruritus [None]
  - Colonoscopy [None]
  - Endoscopy [None]
  - Erythema [None]
  - Pruritus [None]
  - Urticaria [None]
  - Injection site erythema [None]
  - Injection site induration [None]

NARRATIVE: CASE EVENT DATE: 20190813
